FAERS Safety Report 7867331-4 (Version None)
Quarter: 2011Q4

REPORT INFORMATION
  Report Type: 
  Country: None (occurrence: None)
  Receive Date: 20111028
  Receipt Date: 20111017
  Transmission Date: 20120403
  Serious: Yes (Hospitalization)
  Sender: FDA-Public Use
  Company Number: JP-PFIZER INC-2011230509

PATIENT
  Age: 66 Year
  Sex: Male
  Weight: 58 kg

DRUGS (11)
  1. MAGNESIUM SULFATE [Suspect]
     Dosage: UNK
  2. IRINOTECAN HCL [Suspect]
     Indication: COLON CANCER METASTATIC
     Dosage: 180 MG/M2, UNK
     Route: 042
     Dates: start: 20110824, end: 20110913
  3. IRINOTECAN HCL [Suspect]
     Indication: RECTAL CANCER
  4. CS-7017 [Suspect]
     Indication: COLON CANCER METASTATIC
     Dosage: 0.5 MG, 2X/DAY
     Route: 048
     Dates: start: 20110824, end: 20110927
  5. LASIX [Suspect]
  6. CS-7017 [Suspect]
     Indication: RECTAL CANCER
  7. FLUOROURACIL [Suspect]
     Indication: COLON CANCER METASTATIC
     Dosage: 2400 MG/M2, UNK
     Route: 042
     Dates: start: 20110824, end: 20110913
  8. ISOVORIN [Suspect]
     Indication: COLON CANCER METASTATIC
     Dosage: 200 MG/M2, UNK
     Route: 042
     Dates: start: 20110824, end: 20110913
  9. FLUOROURACIL [Suspect]
     Indication: RECTAL CANCER
  10. ISOVORIN [Suspect]
     Indication: RECTAL CANCER
  11. ALDACTONE [Suspect]

REACTIONS (1)
  - INTERSTITIAL LUNG DISEASE [None]
